FAERS Safety Report 8605872-2 (Version None)
Quarter: 2012Q3

REPORT INFORMATION
  Report Type: 
  Country: None (occurrence: None)
  Receive Date: 20120820
  Receipt Date: 20120810
  Transmission Date: 20120928
  Serious: Yes (Hospitalization, Congenital Anomaly)
  Sender: FDA-Public Use
  Company Number: US-GLAXOSMITHKLINE-A0990099A

PATIENT
  Sex: Female

DRUGS (2)
  1. MULTI-VITAMINS [Concomitant]
     Route: 064
  2. PAXIL CR [Suspect]
     Indication: ANXIETY
     Dosage: 25MG PER DAY
     Route: 064
     Dates: start: 20040101

REACTIONS (5)
  - FOETAL EXPOSURE DURING PREGNANCY [None]
  - CLEFT PALATE [None]
  - TALIPES [None]
  - DYSMORPHISM [None]
  - ANKYLOGLOSSIA CONGENITAL [None]
